FAERS Safety Report 21990746 (Version 1)
Quarter: 2023Q1

REPORT INFORMATION
  Report Type: Spontaneous
  Country: US (occurrence: US)
  Receive Date: 20230214
  Receipt Date: 20230214
  Transmission Date: 20230417
  Serious: No
  Sender: FDA-Public Use
  Company Number: USA--2023-US-000002

PATIENT
  Age: 73 Year
  Sex: Male

DRUGS (4)
  1. LATANOPROST [Suspect]
     Active Substance: LATANOPROST
     Dosage: 1 DROP OU QD
  2. REFRESH TEARS [Interacting]
     Active Substance: CARBOXYMETHYLCELLULOSE SODIUM
  3. ADVIL [Concomitant]
     Active Substance: IBUPROFEN
     Route: 048
  4. VITAMIN B12 [Suspect]
     Active Substance: CYANOCOBALAMIN
     Route: 048

REACTIONS (4)
  - Dry eye [Recovered/Resolved]
  - Eyelid oedema [Recovered/Resolved]
  - Photophobia [Recovered/Resolved]
  - Erythema [Recovered/Resolved]

NARRATIVE: CASE EVENT DATE: 20220601
